FAERS Safety Report 6744609-9 (Version None)
Quarter: 2010Q2

REPORT INFORMATION
  Report Type: 
  Country: None (occurrence: None)
  Receive Date: 20100526
  Receipt Date: 20100526
  Transmission Date: 20101027
  Serious: Yes (Life-Threatening, Hospitalization)
  Sender: FDA-Public Use
  Company Number: None

PATIENT
  Age: 71 Year
  Sex: Female

DRUGS (1)
  1. LOSARTAN POTASSIUM [Suspect]
     Dosage: 50 MG EVERY DAY PO
     Route: 048
     Dates: start: 20050909, end: 20100309

REACTIONS (3)
  - ANGIOEDEMA [None]
  - MUSCLE SPASMS [None]
  - SPEECH DISORDER [None]
